FAERS Safety Report 17439618 (Version 1)
Quarter: 2020Q1

REPORT INFORMATION
  Report Type: Spontaneous
  Country: RU (occurrence: RU)
  Receive Date: 20200220
  Receipt Date: 20200220
  Transmission Date: 20200409
  Serious: Yes (Other)
  Sender: FDA-Public Use
  Company Number: RU-009507513-2002RUS005941

PATIENT
  Sex: Female

DRUGS (1)
  1. NUVARING [Suspect]
     Active Substance: ETHINYL ESTRADIOL\ETONOGESTREL
     Dosage: RING
     Route: 067
     Dates: start: 2018

REACTIONS (3)
  - Neoplasm malignant [Unknown]
  - Cervix disorder [Unknown]
  - Metrorrhagia [Unknown]
